FAERS Safety Report 5454346-9 (Version None)
Quarter: 2007Q3

REPORT INFORMATION
  Report Type: 
  Country: None (occurrence: None)
  Receive Date: 20070917
  Receipt Date: 20070228
  Transmission Date: 20080115
  Serious: Yes (Other)
  Sender: FDA-Public Use
  Company Number: US-ASTRAZENECA-2006UW11770

PATIENT
  Sex: Female
  Weight: 106.8 kg

DRUGS (7)
  1. SEROQUEL [Suspect]
     Indication: DEPRESSION
     Route: 048
     Dates: start: 20040802
  2. SEROQUEL [Suspect]
     Indication: SLEEP DISORDER
     Route: 048
     Dates: start: 20040802
  3. SEROQUEL [Suspect]
     Route: 048
     Dates: end: 20061001
  4. SEROQUEL [Suspect]
     Route: 048
     Dates: end: 20061001
  5. PAXIL [Concomitant]
  6. LEXAPRO [Concomitant]
  7. CELEXA [Concomitant]

REACTIONS (5)
  - DIABETES MELLITUS [None]
  - DIABETIC KETOACIDOSIS [None]
  - GLYCOSURIA [None]
  - HYPERGLYCAEMIA [None]
  - OBESITY [None]
